FAERS Safety Report 20054161 (Version 1)
Quarter: 2021Q4

REPORT INFORMATION
  Report Type: Spontaneous
  Country: US (occurrence: None)
  Receive Date: 20211110
  Receipt Date: 20211110
  Transmission Date: 20220303
  Serious: No
  Sender: FDA-Public Use
  Company Number: None

PATIENT
  Age: 5 Year
  Sex: Male

DRUGS (1)
  1. VYVANSE [Suspect]
     Active Substance: LISDEXAMFETAMINE DIMESYLATE
     Indication: Attention deficit hyperactivity disorder
     Dosage: OTHER QUANTITY : 1 TABLET(S);?FREQUENCY : DAILY;?
     Route: 048
     Dates: start: 20211104, end: 20211107

REACTIONS (6)
  - Decreased appetite [None]
  - Anxiety [None]
  - Logorrhoea [None]
  - Irritability [None]
  - Dry mouth [None]
  - Nausea [None]

NARRATIVE: CASE EVENT DATE: 20211101
